FAERS Safety Report 5501130-3 (Version None)
Quarter: 2007Q4

REPORT INFORMATION
  Report Type: 
  Country: None (occurrence: None)
  Receive Date: 20071029
  Receipt Date: 20071017
  Transmission Date: 20080405
  Serious: Yes (Other)
  Sender: FDA-Public Use
  Company Number: JP-PFIZER INC-2007078957

PATIENT
  Sex: Male

DRUGS (7)
  1. MINIPRESS [Suspect]
     Indication: BENIGN PROSTATIC HYPERPLASIA
     Route: 048
  2. HARNAL [Suspect]
     Indication: BENIGN PROSTATIC HYPERPLASIA
     Route: 048
  3. LANIRAPID [Concomitant]
     Indication: CARDIAC FAILURE
  4. ALLOPURINOL [Concomitant]
     Indication: HYPERURICAEMIA
  5. LASIX [Concomitant]
     Indication: CARDIAC FAILURE
  6. KARY UNI [Concomitant]
     Route: 047
     Dates: start: 20050501, end: 20070903
  7. FAMOTIDINE [Concomitant]
     Indication: GASTRITIS

REACTIONS (2)
  - FLOPPY IRIS SYNDROME [None]
  - IRIS ATROPHY [None]
